FAERS Safety Report 11581259 (Version 1)
Quarter: 2015Q4

REPORT INFORMATION
  Report Type: Spontaneous
  Country: US (occurrence: US)
  Receive Date: 20151001
  Receipt Date: 20151001
  Transmission Date: 20160304
  Serious: Yes (Hospitalization)
  Sender: FDA-Public Use
  Company Number: US-HOSPIRA-3019941

PATIENT
  Age: 2 Year
  Sex: Female

DRUGS (1)
  1. KETAMINE HYDROCHLORIDE. [Suspect]
     Active Substance: KETAMINE HYDROCHLORIDE
     Indication: SEDATIVE THERAPY
     Route: 030

REACTIONS (4)
  - Product selection error [Recovered/Resolved]
  - Accidental overdose [Recovered/Resolved]
  - Salivary hypersecretion [Recovered/Resolved]
  - Toxicity to various agents [Recovered/Resolved]
